FAERS Safety Report 18550634 (Version 3)
Quarter: 2020Q4

REPORT INFORMATION
  Report Type: Spontaneous
  Country: US (occurrence: US)
  Receive Date: 20201126
  Receipt Date: 20201217
  Transmission Date: 20210114
  Serious: No
  Sender: FDA-Public Use
  Company Number: US-PFIZER INC-2020465822

PATIENT
  Age: 68 Year
  Sex: Male

DRUGS (2)
  1. ADVIL LIQUI-GELS [Suspect]
     Active Substance: IBUPROFEN
     Dosage: UNK
  2. ADVIL LIQUI-GELS [Suspect]
     Active Substance: IBUPROFEN
     Dosage: UNK

REACTIONS (6)
  - Throat irritation [Recovered/Resolved]
  - Pain [Recovered/Resolved]
  - Product complaint [Recovered/Resolved]
  - Poor quality product administered [Unknown]
  - Oral discomfort [Recovered/Resolved]
  - Product taste abnormal [Recovered/Resolved]
